FAERS Safety Report 12561967 (Version 1)
Quarter: 2016Q3

REPORT INFORMATION
  Report Type: Spontaneous
  Country: US (occurrence: US)
  Receive Date: 20160715
  Receipt Date: 20160715
  Transmission Date: 20161109
  Serious: Yes (Other)
  Sender: FDA-Public Use
  Company Number: US-BAYER-2016-138062

PATIENT
  Age: 72 Year
  Sex: Male
  Weight: 102.4 kg

DRUGS (3)
  1. ALKA-SELTZER HEARTBURN [Suspect]
     Active Substance: ANHYDROUS CITRIC ACID\SODIUM BICARBONATE
     Indication: DYSPEPSIA
     Dosage: 2 DF, PRN
     Route: 048
     Dates: start: 1980
  2. ALKA-SELTZER ORIGINAL [Suspect]
     Active Substance: ANHYDROUS CITRIC ACID\ASPIRIN\SODIUM BICARBONATE
     Indication: DYSPEPSIA
     Dosage: 2 DF, PRN
     Route: 048
     Dates: start: 1980
  3. OMEPRAZOLE. [Concomitant]
     Active Substance: OMEPRAZOLE

REACTIONS (3)
  - Expired product administered [None]
  - Eructation [Recovered/Resolved]
  - Myocardial infarction [None]

NARRATIVE: CASE EVENT DATE: 200001
